FAERS Safety Report 9157442 (Version 1)
Quarter: 2013Q1

REPORT INFORMATION
  Report Type: Spontaneous
  Country: US (occurrence: US)
  Receive Date: 20130312
  Receipt Date: 20130312
  Transmission Date: 20140127
  Serious: No
  Sender: FDA-Public Use
  Company Number: US-B.I. PHARMACEUTICALS,INC./RIDGEFIELD-2013-BI-06450BP

PATIENT
  Sex: Male
  Weight: 93 kg

DRUGS (12)
  1. SPIRIVA [Suspect]
     Indication: CHRONIC OBSTRUCTIVE PULMONARY DISEASE
     Dosage: 18 MCG
     Route: 055
     Dates: start: 2009
  2. ASPIRIN [Concomitant]
     Dosage: 325 MG
     Route: 048
  3. SIMVASTATIN [Concomitant]
     Indication: BLOOD CHOLESTEROL INCREASED
     Route: 048
  4. SYNTHROID [Concomitant]
     Indication: HYPOTHYROIDISM
     Route: 048
  5. PREVACID [Concomitant]
     Indication: GASTROOESOPHAGEAL REFLUX DISEASE
     Route: 048
  6. PREVACID [Concomitant]
     Indication: HIATUS HERNIA
  7. MUCINEX [Concomitant]
     Route: 048
  8. DUONEB [Concomitant]
     Route: 055
  9. METHOCARBAMOL [Concomitant]
     Route: 048
  10. TYLENOL [Concomitant]
     Indication: BACK PAIN
     Dosage: 2000 MG
     Route: 048
  11. LOVAZA [Concomitant]
     Route: 048
  12. MULTIVITAMIN [Concomitant]
     Route: 048

REACTIONS (3)
  - Nasal congestion [Not Recovered/Not Resolved]
  - Dyspnoea [Not Recovered/Not Resolved]
  - Therapeutic response decreased [Not Recovered/Not Resolved]
